FAERS Safety Report 4461220-3 (Version None)
Quarter: 2004Q3

REPORT INFORMATION
  Report Type: 
  Country: None (occurrence: None)
  Receive Date: 20040928
  Receipt Date: 20030910
  Transmission Date: 20050211
  Serious: Yes (Hospitalization)
  Sender: FDA-Public Use
  Company Number: PHBS2003BR09746

PATIENT
  Age: 86 Year
  Sex: Female
  Weight: 45 kg

DRUGS (4)
  1. TRILEPTAL [Suspect]
     Indication: EPILEPSY
     Dosage: 300 MG, BID
     Route: 048
     Dates: start: 20010601
  2. ALDOMET [Concomitant]
     Indication: HYPERTENSION
     Route: 048
  3. ASPIRINA [Concomitant]
     Route: 048
  4. TICLOPIDINE HCL [Concomitant]
     Route: 048

REACTIONS (8)
  - DRUG INEFFECTIVE [None]
  - FALL [None]
  - HEAD INJURY [None]
  - PETIT MAL EPILEPSY [None]
  - PLASTIC SURGERY [None]
  - SPEECH DISORDER [None]
  - SUBDURAL HAEMORRHAGE [None]
  - VISUAL DISTURBANCE [None]
